FAERS Safety Report 5082704-3 (Version None)
Quarter: 2006Q3

REPORT INFORMATION
  Report Type: 
  Country: None (occurrence: None)
  Receive Date: 20060816
  Receipt Date: 20060816
  Transmission Date: 20061208
  Serious: No
  Sender: FDA-Public Use
  Company Number: None

PATIENT
  Age: 40 Year
  Sex: Female
  Weight: 90.7194 kg

DRUGS (4)
  1. EFFEXOR [Suspect]
     Indication: ANXIETY
     Dosage: 150 MG  TWICE A DAY  PO
     Route: 048
     Dates: start: 20060622, end: 20060719
  2. EFFEXOR [Suspect]
     Indication: MIGRAINE
     Dosage: 150 MG  TWICE A DAY  PO
     Route: 048
     Dates: start: 20060622, end: 20060719
  3. ZOLOFT [Suspect]
     Indication: ANXIETY
     Dosage: 50 MG    ONCE A DAY   PO
     Route: 048
     Dates: start: 20050601, end: 20060622
  4. ZOLOFT [Suspect]
     Indication: MIGRAINE
     Dosage: 50 MG    ONCE A DAY   PO
     Route: 048
     Dates: start: 20050601, end: 20060622

REACTIONS (7)
  - ANXIETY [None]
  - CHEST PAIN [None]
  - COUGH [None]
  - DRUG WITHDRAWAL SYNDROME [None]
  - DYSPNOEA [None]
  - MIGRAINE [None]
  - VISION BLURRED [None]
